FAERS Safety Report 9028131 (Version 2)
Quarter: 2013Q4

REPORT INFORMATION
  Report Type: Spontaneous
  Country: GB (occurrence: GB)
  Receive Date: 20130123
  Receipt Date: 20131011
  Transmission Date: 20140711
  Serious: Yes (Other)
  Sender: FDA-Public Use
  Company Number: GB-ACCORD-016040

PATIENT
  Sex: Female

DRUGS (1)
  1. SIMVASTATIN [Suspect]
     Route: 050
     Dates: start: 20090212, end: 20100416

REACTIONS (3)
  - Ectopic pregnancy [Unknown]
  - Abortion spontaneous [Unknown]
  - Exposure via father [Unknown]
